FAERS Safety Report 5589241-8 (Version None)
Quarter: 2008Q1

REPORT INFORMATION
  Report Type: 
  Country: None (occurrence: None)
  Receive Date: 20080114
  Receipt Date: 20080104
  Transmission Date: 20080703
  Serious: Yes (Hospitalization)
  Sender: FDA-Public Use
  Company Number: PHRM2008FR00483

PATIENT
  Age: 32 Year
  Sex: Female

DRUGS (6)
  1. TRILEPTAL [Suspect]
     Indication: PARTIAL SEIZURES
     Route: 048
     Dates: start: 20020101, end: 20070201
  2. TRILEPTAL [Suspect]
     Route: 048
     Dates: start: 20070301, end: 20070701
  3. TRILEPTAL [Suspect]
     Route: 048
     Dates: start: 20070701
  4. DEPAKENE [Suspect]
     Indication: PARTIAL SEIZURES
     Route: 048
     Dates: start: 20020101, end: 20070201
  5. DEPAKENE [Suspect]
     Route: 048
     Dates: start: 20070301, end: 20070701
  6. DEPAKENE [Suspect]
     Route: 048
     Dates: start: 20070701

REACTIONS (8)
  - DRUG WITHDRAWAL SYNDROME [None]
  - HALLUCINATION, AUDITORY [None]
  - HALLUCINATION, OLFACTORY [None]
  - HALLUCINATION, SYNAESTHETIC [None]
  - HALLUCINATION, VISUAL [None]
  - PERSECUTORY DELUSION [None]
  - PSYCHOTIC DISORDER [None]
  - WEIGHT INCREASED [None]
